FAERS Safety Report 7095608-1 (Version None)
Quarter: 2010Q4

REPORT INFORMATION
  Report Type: 
  Country: None (occurrence: None)
  Receive Date: 20101111
  Receipt Date: 20101103
  Transmission Date: 20110411
  Serious: Yes (Hospitalization, Other)
  Sender: FDA-Public Use
  Company Number: US-ELI_LILLY_AND_COMPANY-US200903003319

PATIENT
  Sex: Female
  Weight: 81.633 kg

DRUGS (4)
  1. BYETTA [Suspect]
     Dosage: UNK, UNK
     Dates: start: 20051005, end: 20071101
  2. LEVEMIR [Concomitant]
     Indication: DIABETES MELLITUS
     Dosage: 25 MG, 2/D
  3. LOTREL [Concomitant]
     Dosage: 1 D/F, DAILY (1/D)
  4. VICODIN [Concomitant]
     Indication: SHOULDER OPERATION

REACTIONS (3)
  - OFF LABEL USE [None]
  - PANCREATITIS [None]
  - RENAL INJURY [None]
